FAERS Safety Report 15988662 (Version 8)
Quarter: 2022Q4

REPORT INFORMATION
  Report Type: Report from Study
  Country: GB (occurrence: GB)
  Receive Date: 20190221
  Receipt Date: 20221220
  Transmission Date: 20230112
  Serious: Yes (Hospitalization)
  Sender: FDA-Public Use
  Company Number: None

PATIENT
  Age: 79 Year
  Sex: Female

DRUGS (31)
  1. DOCETAXEL [Suspect]
     Active Substance: DOCETAXEL
     Indication: HER2 positive breast cancer
     Route: 042
     Dates: start: 20150430, end: 20150520
  2. LETROZOLE [Suspect]
     Active Substance: LETROZOLE
     Indication: HER2 positive breast cancer
     Route: 048
     Dates: start: 20160622, end: 2016
  3. TRASTUZUMAB [Suspect]
     Active Substance: TRASTUZUMAB
     Indication: HER2 positive breast cancer
     Dosage: 336 MG ON 30-APR-2015,252 MG FROM 22-MAY-2015 TO 23-JUL-2015,294 MG FROM 24-JUL-2015 TO 18-FEB-2016
     Route: 058
     Dates: start: 20170602, end: 20170626
  4. PERTUZUMAB [Suspect]
     Active Substance: PERTUZUMAB
     Indication: HER2 positive breast cancer
     Dosage: RECEIVED 840 MG FROM 29-APR-2015 TO 29-APR-2015
     Route: 042
     Dates: start: 20150522, end: 20170531
  5. BUTYLSCOPOLAMINE BROMIDE [Concomitant]
     Active Substance: BUTYLSCOPOLAMINE BROMIDE
     Indication: Urinary tract infection
     Route: 048
     Dates: start: 20170511, end: 20170511
  6. HALOPERIDOL [Concomitant]
     Active Substance: HALOPERIDOL
     Route: 048
     Dates: start: 20170511, end: 20170728
  7. BENDROFLUMETHIAZIDE [Concomitant]
     Active Substance: BENDROFLUMETHIAZIDE
     Route: 048
     Dates: end: 2015
  8. CODEINE [Concomitant]
     Active Substance: CODEINE
     Route: 048
     Dates: start: 20150612
  9. DEXAMETHASONE [Concomitant]
     Active Substance: DEXAMETHASONE
     Route: 048
     Dates: start: 20150417, end: 20150420
  10. LISINOPRIL [Concomitant]
     Active Substance: LISINOPRIL
     Route: 048
     Dates: start: 20170728, end: 20170728
  11. OMEPRAZOLE [Concomitant]
     Active Substance: OMEPRAZOLE
     Route: 048
  12. ACETAMINOPHEN [Concomitant]
     Active Substance: ACETAMINOPHEN
     Route: 048
     Dates: start: 2013
  13. LEVOFLOXACIN [Concomitant]
     Active Substance: LEVOFLOXACIN
     Route: 048
     Dates: start: 20170517, end: 20170523
  14. CALCIUM\CHOLECALCIFEROL [Concomitant]
     Active Substance: CALCIUM\CHOLECALCIFEROL
     Route: 048
     Dates: start: 20160624
  15. NIFEDIPINE [Concomitant]
     Active Substance: NIFEDIPINE
     Route: 048
     Dates: end: 20170728
  16. DOCUSATE SODIUM [Concomitant]
     Active Substance: DOCUSATE SODIUM
     Route: 048
     Dates: start: 20170518, end: 20170728
  17. LEVOMEPROMAZINE [Concomitant]
     Active Substance: LEVOMEPROMAZINE
     Route: 048
     Dates: start: 20170512, end: 20170528
  18. PERTUZUMAB [Suspect]
     Active Substance: PERTUZUMAB
     Indication: Product used for unknown indication
     Route: 042
     Dates: start: 20150522, end: 20170531
  19. PERTUZUMAB [Suspect]
     Active Substance: PERTUZUMAB
     Indication: HER2 positive breast cancer
     Dosage: RECEIVED 840 MG FROM 29-APR-2015 TO 29-APR-2015
     Route: 042
     Dates: start: 20150429, end: 20170429
  20. TRASTUZUMAB [Suspect]
     Active Substance: TRASTUZUMAB
     Indication: HER2 positive breast cancer
     Dosage: 336 MG ON 30-APR-2015,252 MG FROM 22-MAY-2015 TO 23-JUL-2015,294 MG FROM 24-JUL-2015 TO 18-FEB-2016
     Route: 042
     Dates: start: 20150430, end: 20150521
  21. TRASTUZUMAB [Suspect]
     Active Substance: TRASTUZUMAB
     Indication: HER2 positive breast cancer
     Dosage: 336 MG ON 30-APR-2015,252 MG FROM 22-MAY-2015 TO 23-JUL-2015,294 MG FROM 24-JUL-2015 TO 18-FEB-2016
     Route: 058
     Dates: start: 20150522, end: 20150723
  22. TRASTUZUMAB [Suspect]
     Active Substance: TRASTUZUMAB
     Indication: HER2 positive breast cancer
     Dosage: 336 MG ON 30-APR-2015,252 MG FROM 22-MAY-2015 TO 23-JUL-2015,294 MG FROM 24-JUL-2015 TO 18-FEB-2016
     Route: 042
     Dates: start: 20160219, end: 20160310
  23. TRASTUZUMAB [Suspect]
     Active Substance: TRASTUZUMAB
     Indication: HER2 positive breast cancer
     Dosage: 336 MG ON 30-APR-2015,252 MG FROM 22-MAY-2015 TO 23-JUL-2015,294 MG FROM 24-JUL-2015 TO 18-FEB-2016
     Route: 042
     Dates: start: 20150724, end: 20160218
  24. TRASTUZUMAB [Suspect]
     Active Substance: TRASTUZUMAB
     Indication: HER2 positive breast cancer
     Dosage: 336 MG ON 30-APR-2015,252 MG FROM 22-MAY-2015 TO 23-JUL-2015,294 MG FROM 24-JUL-2015 TO 18-FEB-2016
     Route: 042
     Dates: start: 20160311, end: 20160421
  25. TRASTUZUMAB [Suspect]
     Active Substance: TRASTUZUMAB
     Indication: HER2 positive breast cancer
     Dosage: 336 MG ON 30-APR-2015,252 MG FROM 22-MAY-2015 TO 23-JUL-2015,294 MG FROM 24-JUL-2015 TO 18-FEB-2016
     Route: 042
     Dates: start: 20160422, end: 20170414
  26. CALCIUM\CHOLECALCIFEROL [Concomitant]
     Active Substance: CALCIUM\CHOLECALCIFEROL
     Route: 048
     Dates: start: 20160622, end: 20170728
  27. DEXAMETHASONE [Concomitant]
     Active Substance: DEXAMETHASONE
     Route: 048
     Dates: start: 20150417, end: 20170728
  28. DEXAMETHASONE [Concomitant]
     Active Substance: DEXAMETHASONE
     Route: 048
     Dates: start: 20170517, end: 20170728
  29. OMEPRAZOLE [Concomitant]
     Active Substance: OMEPRAZOLE
     Route: 048
     Dates: start: 20170517, end: 20170728
  30. PERTUZUMAB [Suspect]
     Active Substance: PERTUZUMAB
     Indication: Breast cancer metastatic
     Route: 042
     Dates: start: 20150429, end: 20150521
  31. DEXAMETHASONE [Concomitant]
     Active Substance: DEXAMETHASONE
     Route: 048
     Dates: start: 20150430, end: 20150503

REACTIONS (11)
  - Fatigue [Recovered/Resolved]
  - Lethargy [Recovered/Resolved]
  - Hepatitis E [Recovered/Resolved]
  - Abdominal pain [Recovered/Resolved]
  - Blood alkaline phosphatase increased [Recovered/Resolved]
  - Nausea [Recovered/Resolved]
  - Chest pain [Recovered/Resolved]
  - Dyspnoea [Recovered/Resolved]
  - Vomiting [Recovered/Resolved]
  - Eye infection [Recovered/Resolved]
  - Diarrhoea [Recovered/Resolved]

NARRATIVE: CASE EVENT DATE: 20150504
